FAERS Safety Report 19999196 (Version 1)
Quarter: 2021Q4

REPORT INFORMATION
  Report Type: Spontaneous
  Country: US (occurrence: US)
  Receive Date: 20211026
  Receipt Date: 20211026
  Transmission Date: 20220304
  Serious: Yes (Other)
  Sender: FDA-Public Use
  Company Number: US-PFIZER INC-2019320281

PATIENT
  Age: 73 Year
  Sex: Female
  Weight: 77.11 kg

DRUGS (2)
  1. RAPAMUNE [Suspect]
     Active Substance: SIROLIMUS
     Indication: Renal transplant
     Dosage: 4 MG, DAILY (4 TABLETS BY MOUTH DAILY)
     Route: 048
     Dates: start: 2006
  2. MYFORTIC [Concomitant]
     Active Substance: MYCOPHENOLATE SODIUM
     Indication: Renal transplant
     Dosage: 80 MG, 2X/DAY
     Dates: start: 2017

REACTIONS (2)
  - Chronic kidney disease [Unknown]
  - Expired product administered [Unknown]

NARRATIVE: CASE EVENT DATE: 20190720
